FAERS Safety Report 13087095 (Version 1)
Quarter: 2017Q1

REPORT INFORMATION
  Report Type: Spontaneous
  Country: US (occurrence: US)
  Receive Date: 20170105
  Receipt Date: 20170105
  Transmission Date: 20170428
  Serious: No
  Sender: FDA-Public Use
  Company Number: US-BRISTOL-MYERS SQUIBB COMPANY-BMS-2016-109917

PATIENT
  Sex: Female

DRUGS (3)
  1. AZTREONAM. [Suspect]
     Active Substance: AZTREONAM
     Indication: BACTERIAL INFECTION
     Dosage: TWO
     Route: 050
  2. AZACTAM [Suspect]
     Active Substance: AZTREONAM
     Indication: BACTERIAL INFECTION
     Route: 042
  3. NORCO [Concomitant]
     Active Substance: ACETAMINOPHEN\HYDROCODONE BITARTRATE
     Indication: PRODUCT USED FOR UNKNOWN INDICATION
     Route: 065

REACTIONS (3)
  - Nausea [Unknown]
  - Oropharyngeal pain [Unknown]
  - Rash [Unknown]
